FAERS Safety Report 4884083-0 (Version None)
Quarter: 2005Q4

REPORT INFORMATION
  Report Type: 
  Country: None (occurrence: None)
  Receive Date: 20051201
  Receipt Date: 20050907
  Transmission Date: 20060501
  Serious: No
  Sender: FDA-Public Use
  Company Number: 2005PV001884

PATIENT
  Age: 67 Year
  Sex: Male

DRUGS (16)
  1. BYETTA [Suspect]
     Indication: DIABETES MELLITUS NON-INSULIN-DEPENDENT
     Dosage: 5 MCG; BID; SC
     Route: 058
     Dates: start: 20050902
  2. METFORMIN [Suspect]
     Indication: DIABETES MELLITUS NON-INSULIN-DEPENDENT
     Dosage: 1000 MG; BID; PO
     Route: 048
     Dates: start: 20050902
  3. METFORMIN [Concomitant]
  4. METFORMIN [Concomitant]
  5. IMDUR [Concomitant]
  6. LIPITOR [Concomitant]
  7. TOPROL [Concomitant]
  8. COZAAR [Concomitant]
  9. ASPIRIN [Concomitant]
  10. AMARYL [Concomitant]
  11. AMARYL [Concomitant]
  12. ZETIA [Concomitant]
  13. NIASPAN [Concomitant]
  14. AVANDIA [Concomitant]
  15. VITAMIN B INJECTION [Concomitant]
  16. ACIPHEX [Concomitant]

REACTIONS (4)
  - ABDOMINAL DISTENSION [None]
  - DIARRHOEA [None]
  - FLATULENCE [None]
  - GASTROOESOPHAGEAL REFLUX DISEASE [None]
